FAERS Safety Report 6136392-5 (Version None)
Quarter: 2009Q1

REPORT INFORMATION
  Report Type: 
  Country: None (occurrence: None)
  Receive Date: 20090330
  Receipt Date: 20090317
  Transmission Date: 20090719
  Serious: Yes (Other)
  Sender: FDA-Public Use
  Company Number: CA-ROCHE-622546

PATIENT
  Sex: Female
  Weight: 56.7 kg

DRUGS (1)
  1. TAMIFLU [Suspect]
     Dosage: DOSE: 1 X BID
     Route: 048
     Dates: start: 20080317, end: 20080322

REACTIONS (1)
  - HYPERTHYROIDISM [None]
